FAERS Safety Report 4733545-5 (Version None)
Quarter: 2005Q3

REPORT INFORMATION
  Report Type: 
  Country: None (occurrence: None)
  Receive Date: 20050729
  Receipt Date: 20050715
  Transmission Date: 20060218
  Serious: Yes (Hospitalization)
  Sender: FDA-Public Use
  Company Number: SGB1-2005-00322

PATIENT
  Age: 54 Year
  Sex: Female

DRUGS (19)
  1. LANTHANUM CARBONATE (LANTHANUM CARBONATE) TABLET CHEWABLE [Suspect]
     Indication: HYPERPHOSPHATAEMIA
     Dosage: SEE IMAGE, ORAL
     Route: 048
     Dates: start: 20050412, end: 20050509
  2. LANTHANUM CARBONATE (LANTHANUM CARBONATE) TABLET CHEWABLE [Suspect]
     Indication: HYPERPHOSPHATAEMIA
     Dosage: SEE IMAGE, ORAL
     Route: 048
     Dates: start: 20050510
  3. LOSARTAN POTASSIUM [Concomitant]
  4. VALSARTAN [Concomitant]
  5. AMLODIPINE BESYLATE [Concomitant]
  6. FAMOTIDINE [Concomitant]
  7. TICLOPIDINE HCL [Concomitant]
  8. PURSENNID [Concomitant]
  9. KETOPROFEN [Concomitant]
  10. UREA (UREA) [Concomitant]
  11. INSULIN HUMAN (INSULIN HUMAN) [Concomitant]
  12. EPOETIN ALFA (EPOETIN ALFA) [Concomitant]
  13. GLYCEROL (GLYCEROL) [Concomitant]
  14. HEPARIN FRACTION, SODIUM SALT [Concomitant]
  15. HEPARIN CALCIUM [Concomitant]
  16. NAFAMOSTAT MESILATE (NAFAMOSTAT MESILATE) [Concomitant]
  17. LIDOCAINE HYDROCHLORIDE [Concomitant]
  18. IOHEXOL (IOHEXOL) [Concomitant]
  19. GLUCOSE (GLUCOSE) [Concomitant]

REACTIONS (7)
  - ARTHRALGIA [None]
  - CHILLS [None]
  - CONDITION AGGRAVATED [None]
  - CORONARY ARTERY DISEASE [None]
  - INTERMITTENT CLAUDICATION [None]
  - MYALGIA [None]
  - PERIPHERAL OCCLUSIVE DISEASE [None]
